FAERS Safety Report 9654687 (Version 1)
Quarter: 2013Q4

REPORT INFORMATION
  Report Type: Spontaneous
  Country: US (occurrence: US)
  Receive Date: 20131029
  Receipt Date: 20131029
  Transmission Date: 20140711
  Serious: No
  Sender: FDA-Public Use
  Company Number: US-009507513-1310USA013541

PATIENT
  Sex: Female

DRUGS (2)
  1. CLARITIN REDITABS [Suspect]
     Indication: RHINORRHOEA
     Dosage: 10 MG, ONCE
     Route: 048
     Dates: start: 20131021
  2. CLARITIN REDITABS [Suspect]
     Indication: NASOPHARYNGITIS

REACTIONS (3)
  - Somnolence [Unknown]
  - Drug ineffective [Unknown]
  - Off label use [Unknown]
